FAERS Safety Report 7399704-0 (Version None)
Quarter: 2011Q2

REPORT INFORMATION
  Report Type: 
  Country: None (occurrence: None)
  Receive Date: 20110407
  Receipt Date: 20110323
  Transmission Date: 20111010
  Serious: Yes (Hospitalization)
  Sender: FDA-Public Use
  Company Number: CA-JNJFOC-20110310241

PATIENT
  Sex: Male
  Weight: 66 kg

DRUGS (5)
  1. AZATHIOPRINE [Concomitant]
     Route: 065
  2. CODEINE SUL TAB [Concomitant]
     Route: 065
  3. PREDNISONE [Concomitant]
     Route: 065
  4. PERCOCET [Concomitant]
     Route: 065
  5. REMICADE [Suspect]
     Indication: COLITIS ULCERATIVE
     Route: 042

REACTIONS (1)
  - PULMONARY EMBOLISM [None]
